FAERS Safety Report 7768356-X (Version None)
Quarter: 2011Q3

REPORT INFORMATION
  Report Type: 
  Country: None (occurrence: None)
  Receive Date: 20110919
  Receipt Date: 20110906
  Transmission Date: 20111222
  Serious: Yes (Hospitalization, Other)
  Sender: FDA-Public Use
  Company Number: JPI-P-016954

PATIENT
  Age: 35 Year
  Sex: Male
  Weight: 86.1834 kg

DRUGS (1)
  1. XYREM [Suspect]
     Indication: CATAPLEXY
     Dosage: ,ORAL   9 GM (4.5 GM, 2 IN 1 D), ORAL
     Route: 048
     Dates: start: 20080901

REACTIONS (5)
  - ABDOMINAL PAIN UPPER [None]
  - ABDOMINAL ABSCESS [None]
  - PANCREATITIS [None]
  - ABDOMINAL HERNIA [None]
  - CHOLECYSTITIS INFECTIVE [None]
